FAERS Safety Report 16688607 (Version 1)
Quarter: 2019Q3

REPORT INFORMATION
  Report Type: Spontaneous
  Country: US (occurrence: US)
  Receive Date: 20190809
  Receipt Date: 20190809
  Transmission Date: 20191004
  Serious: No
  Sender: FDA-Public Use
  Company Number: US-PURDUE-USA-2019-0147042

PATIENT
  Age: 55 Year
  Sex: Female

DRUGS (4)
  1. BUTRANS [Suspect]
     Active Substance: BUPRENORPHINE
     Dosage: 15 MCG/HR, WEEKLY
     Route: 062
     Dates: start: 20190409, end: 20190411
  2. BUTRANS [Suspect]
     Active Substance: BUPRENORPHINE
     Dosage: 15 MCG/HR, WEEKLY
     Route: 062
     Dates: start: 20190326
  3. BUTRANS [Suspect]
     Active Substance: BUPRENORPHINE
     Indication: PAIN
     Dosage: 15 MCG/HR, WEEKLY
     Route: 062
     Dates: start: 2017
  4. BUTRANS [Suspect]
     Active Substance: BUPRENORPHINE
     Dosage: 15 MCG/HR, WEEKLY
     Route: 063
     Dates: start: 20190426

REACTIONS (4)
  - Application site pruritus [Not Recovered/Not Resolved]
  - Application site burn [Recovered/Resolved]
  - Inappropriate schedule of product administration [Unknown]
  - Incorrect product administration duration [Unknown]

NARRATIVE: CASE EVENT DATE: 201903
